FAERS Safety Report 9054444 (Version 1)
Quarter: 2013Q1

REPORT INFORMATION
  Report Type: Spontaneous
  Country: US (occurrence: US)
  Receive Date: 20130208
  Receipt Date: 20130208
  Transmission Date: 20140127
  Serious: No
  Sender: FDA-Public Use
  Company Number: US-GLAXOSMITHKLINE-A0970753A

PATIENT
  Age: 49 Year
  Sex: Female
  Weight: 54.5 kg

DRUGS (3)
  1. PAXIL [Suspect]
     Indication: DEPRESSION
     Dosage: 20MG AT NIGHT
     Route: 048
  2. LANTUS [Concomitant]
     Indication: TYPE 1 DIABETES MELLITUS
     Dosage: 20MG PER DAY
  3. HUMALOG [Concomitant]
     Indication: TYPE 1 DIABETES MELLITUS

REACTIONS (6)
  - Sedation [Unknown]
  - Fatigue [Unknown]
  - Feeling abnormal [Unknown]
  - Dissociation [Unknown]
  - Ill-defined disorder [Unknown]
  - Drug ineffective [Unknown]
